FAERS Safety Report 20773308 (Version 1)
Quarter: 2022Q2

REPORT INFORMATION
  Report Type: Spontaneous
  Country: CN (occurrence: CN)
  Receive Date: 20220502
  Receipt Date: 20220502
  Transmission Date: 20220721
  Serious: Yes (Hospitalization, Other)
  Sender: FDA-Public Use
  Company Number: None

PATIENT
  Age: 52 Year
  Sex: Female
  Weight: 54 kg

DRUGS (4)
  1. OLANZAPINE [Suspect]
     Active Substance: OLANZAPINE
     Indication: Dissociative disorder
     Dosage: 5MG,QD
     Route: 048
     Dates: start: 20220322
  2. OLANZAPINE [Suspect]
     Active Substance: OLANZAPINE
     Dosage: DOSE WAS GRADUALLY ADJUSTED
     Route: 048
  3. OLANZAPINE [Suspect]
     Active Substance: OLANZAPINE
     Dosage: DOSE OF OLANZAPINE WAS INCREASED TO 15 MG (0-2-1)
     Route: 048
     Dates: start: 20220407, end: 20220422
  4. LORAZEPAM [Concomitant]
     Active Substance: LORAZEPAM
     Indication: Insomnia
     Dosage: 1MG,QD
     Route: 048
     Dates: start: 20220322, end: 20220408

REACTIONS (1)
  - Extrapyramidal disorder [Recovered/Resolved]

NARRATIVE: CASE EVENT DATE: 20220406
